FAERS Safety Report 9261365 (Version 1)
Quarter: 2013Q2

REPORT INFORMATION
  Report Type: Spontaneous
  Country: US (occurrence: US)
  Receive Date: 20130429
  Receipt Date: 20130429
  Transmission Date: 20140414
  Serious: Yes (Hospitalization)
  Sender: FDA-Public Use
  Company Number: US-ABBOTT-13P-163-1081078-00

PATIENT
  Sex: 0

DRUGS (5)
  1. HUMIRA [Suspect]
     Indication: CROHN^S DISEASE
  2. REMICADE [Suspect]
     Indication: CROHN^S DISEASE
     Route: 042
  3. PREDNISONE [Suspect]
     Indication: CROHN^S DISEASE
  4. 6-MP [Suspect]
     Indication: CROHN^S DISEASE
  5. UNKNOWN MEDICATION [Suspect]
     Indication: CROHN^S DISEASE

REACTIONS (6)
  - Intestinal obstruction [Unknown]
  - Abscess [Unknown]
  - Crohn^s disease [Unknown]
  - Crohn^s disease [Unknown]
  - Crohn^s disease [Unknown]
  - Crohn^s disease [Unknown]
